FAERS Safety Report 4447535-3 (Version None)
Quarter: 2004Q3

REPORT INFORMATION
  Report Type: 
  Country: None (occurrence: None)
  Receive Date: 20040812
  Receipt Date: 20040608
  Transmission Date: 20050211
  Serious: No
  Sender: FDA-Public Use
  Company Number: USA040669518

PATIENT
  Age: 53 Year
  Sex: Male
  Weight: 114 kg

DRUGS (3)
  1. CIALIS [Suspect]
     Indication: ERECTILE DYSFUNCTION
     Dosage: 10 MG
     Dates: start: 20040606
  2. ENALAPRIL [Concomitant]
  3. LIPITOR [Concomitant]

REACTIONS (1)
  - DRUG INEFFECTIVE [None]
